FAERS Safety Report 22836737 (Version 2)
Quarter: 2023Q4

REPORT INFORMATION
  Report Type: Spontaneous
  Country: US (occurrence: US)
  Receive Date: 20230818
  Receipt Date: 20231114
  Transmission Date: 20240110
  Serious: Yes (Hospitalization, Other)
  Sender: FDA-Public Use
  Company Number: US-BRISTOL-MYERS SQUIBB COMPANY-2023-112167

PATIENT
  Sex: Male
  Weight: 71.29 kg

DRUGS (2)
  1. OPDIVO [Suspect]
     Active Substance: NIVOLUMAB
     Indication: Product used for unknown indication
  2. JAKAFI [Suspect]
     Active Substance: RUXOLITINIB
     Indication: Nodular lymphocyte predominant Hodgkin lymphoma
     Dosage: BID
     Route: 048
     Dates: start: 2016

REACTIONS (6)
  - Illness [Unknown]
  - Cataract [Unknown]
  - Blindness [Recovered/Resolved]
  - Arthropathy [Unknown]
  - Cardiovascular disorder [Unknown]
  - Optic nerve disorder [Recovered/Resolved]

NARRATIVE: CASE EVENT DATE: 20160101
